FAERS Safety Report 4655133-1 (Version None)
Quarter: 2005Q2

REPORT INFORMATION
  Report Type: 
  Country: None (occurrence: None)
  Receive Date: 20050505
  Receipt Date: 20050427
  Transmission Date: 20051028
  Serious: Yes (Hospitalization)
  Sender: FDA-Public Use
  Company Number: 863#8#2005-00003

PATIENT
  Age: 50 Year
  Sex: Male

DRUGS (3)
  1. IDROLAX (MACROGOL) [Suspect]
     Indication: COLONOSCOPY
     Dosage: 1.3 LITRES TOTAL VOLUME
     Route: 048
  2. ANTIDEPRESSANTS [Concomitant]
  3. BETA BLOCKERS [Concomitant]

REACTIONS (6)
  - CONDITION AGGRAVATED [None]
  - GASTROINTESTINAL OEDEMA [None]
  - INTESTINAL ISCHAEMIA [None]
  - INTESTINAL STRANGULATION [None]
  - POST PROCEDURAL COMPLICATION [None]
  - RECTAL PROLAPSE [None]
